FAERS Safety Report 4380032-2 (Version None)
Quarter: 2004Q2

REPORT INFORMATION
  Report Type: 
  Country: None (occurrence: None)
  Receive Date: 20040614
  Receipt Date: 20040507
  Transmission Date: 20050107
  Serious: No
  Sender: FDA-Public Use
  Company Number: M04-341-145

PATIENT
  Age: 70 Year
  Sex: Male

DRUGS (1)
  1. VELCADE [Suspect]
     Indication: MANTLE CELL LYMPHOMA
     Dosage: 1.3MG/M2: INTRAVENOUS
     Route: 042
     Dates: end: 20040504

REACTIONS (2)
  - HERPES ZOSTER [None]
  - URTICARIA [None]
